FAERS Safety Report 7824308-2 (Version None)
Quarter: 2011Q4

REPORT INFORMATION
  Report Type: 
  Country: None (occurrence: None)
  Receive Date: 20111018
  Receipt Date: 20111018
  Transmission Date: 20120403
  Serious: No
  Sender: FDA-Public Use
  Company Number: None

PATIENT
  Age: 50 Year
  Sex: Male

DRUGS (1)
  1. ALFUZOSIN HCL [Suspect]
     Indication: POLLAKIURIA
     Dosage: 10MG ONCE DAILY BY MOUTH
     Route: 048
     Dates: start: 20110928, end: 20111001

REACTIONS (4)
  - BLADDER PAIN [None]
  - PRODUCT SUBSTITUTION ISSUE [None]
  - POLLAKIURIA [None]
  - BLADDER DISORDER [None]
